FAERS Safety Report 12039460 (Version 1)
Quarter: 2016Q1

REPORT INFORMATION
  Report Type: Report from Study
  Country: None (occurrence: US)
  Receive Date: 20160208
  Receipt Date: 20160208
  Transmission Date: 20160526
  Serious: No
  Sender: FDA-Public Use
  Company Number: US-AMAG PHARMACEUTICALS, INC.-AMAG201501195

PATIENT

DRUGS (4)
  1. MAKENA [Suspect]
     Active Substance: HYDROXYPROGESTERONE CAPROATE
     Indication: PREMATURE DELIVERY
     Dosage: 250 MG, WEEKLY
     Route: 030
     Dates: start: 20150923
  2. PRENATAL VITAMINS [Concomitant]
     Active Substance: VITAMINS
     Indication: PREGNANCY
     Dosage: UNK
     Dates: start: 201502
  3. CHLORTHALIDONE. [Concomitant]
     Active Substance: CHLORTHALIDONE
     Indication: HYPERTENSION
     Dosage: UNK
     Dates: end: 201501
  4. MAGNESIUM [Concomitant]
     Active Substance: MAGNESIUM
     Indication: UTERINE CONTRACTIONS DURING PREGNANCY
     Dosage: 250 MG, UNK
     Dates: start: 201512

REACTIONS (1)
  - Vaginal discharge [Unknown]

NARRATIVE: CASE EVENT DATE: 20151021
